FAERS Safety Report 9665956 (Version 1)
Quarter: 2013Q4

REPORT INFORMATION
  Report Type: Spontaneous
  Country: ES (occurrence: ES)
  Receive Date: 20131104
  Receipt Date: 20131104
  Transmission Date: 20140711
  Serious: Yes (Hospitalization)
  Sender: FDA-Public Use
  Company Number: US-ASTRAZENECA-2013SE80624

PATIENT
  Age: 63 Year
  Sex: Female

DRUGS (7)
  1. CUBICIN [Suspect]
     Indication: NOSOCOMIAL INFECTION
     Route: 042
     Dates: start: 20130208, end: 20130217
  2. CUBICIN [Suspect]
     Indication: OFF LABEL USE
     Route: 042
     Dates: start: 20130208, end: 20130217
  3. MEROPENEM [Suspect]
     Indication: NOSOCOMIAL INFECTION
     Route: 042
     Dates: start: 20130207, end: 20130217
  4. COLISTIMETATO DE SODIO GES [Suspect]
     Indication: NOSOCOMIAL INFECTION
     Dosage: 8 MIU, BID
     Route: 042
     Dates: start: 20130207, end: 20130217
  5. HALOPERIDOL [Concomitant]
     Route: 065
     Dates: start: 20130202
  6. PANTOPRAZOLE [Concomitant]
     Route: 065
     Dates: start: 20130129
  7. DOLANTINA [Concomitant]
     Route: 065
     Dates: start: 20130202

REACTIONS (1)
  - Hepatitis [Recovered/Resolved]
